FAERS Safety Report 7381391-9 (Version None)
Quarter: 2011Q1

REPORT INFORMATION
  Report Type: 
  Country: None (occurrence: None)
  Receive Date: 20110321
  Receipt Date: 20110308
  Transmission Date: 20110831
  Serious: Yes (Hospitalization)
  Sender: FDA-Public Use
  Company Number: 2011P1004912

PATIENT
  Sex: Male

DRUGS (2)
  1. TEMGESIC (BUPRENORPHINE HYDROCHLORIDE) (NO. PREF. NAME) [Suspect]
     Indication: PAIN
     Dosage: 400 UG; QID; TDER, 200 UG; PRN; TDER
     Route: 062
  2. FENTANYL [Suspect]
     Indication: PAIN
     Dosage: TDER
     Route: 062

REACTIONS (2)
  - APNOEA [None]
  - INADEQUATE ANALGESIA [None]
